FAERS Safety Report 9252043 (Version 1)
Quarter: 2013Q1

REPORT INFORMATION
  Report Type: Spontaneous
  Country: US (occurrence: None)
  Receive Date: 20130305
  Receipt Date: 20130305
  Transmission Date: 20140127
  Serious: Yes (Other)
  Sender: FDA-Public Use
  Company Number: 163-21880-12071842

PATIENT
  Age: 73 Year
  Sex: Female

DRUGS (4)
  1. REVLIMID (LENALIDOMIDE) (CAPSULES) [Suspect]
     Indication: PLASMA CELL MYELOMA
     Dosage: 25 MG, 21 IN 21 D, PO
     Dates: start: 20120127
  2. VELCADE [Concomitant]
  3. FUROSEMIDE (FUROSEMIDE) [Concomitant]
  4. PROCRIT [Concomitant]

REACTIONS (1)
  - Anaemia [None]
